FAERS Safety Report 6537693-9 (Version None)
Quarter: 2010Q1

REPORT INFORMATION
  Report Type: 
  Country: None (occurrence: None)
  Receive Date: 20100107
  Receipt Date: 20091223
  Transmission Date: 20100710
  Serious: Yes (Other)
  Sender: FDA-Public Use
  Company Number: AUR-APL-2009-01195

PATIENT
  Age: 30 Year
  Sex: Male

DRUGS (3)
  1. RIBAVIRIN [Suspect]
     Indication: HEPATITIS C
     Dosage: 800MG - DAILY
  2. INTERFERON ALFA [Suspect]
     Indication: HEPATITIS C
     Dosage: 135MCG - WEEKLY - SC
     Route: 058
  3. AMISULPRIDE [Suspect]
     Dosage: 1000MG - DAILY

REACTIONS (14)
  - ACUTE PSYCHOSIS [None]
  - DRUG EFFECT DECREASED [None]
  - FEAR [None]
  - HALLUCINATION, AUDITORY [None]
  - IMPAIRED WORK ABILITY [None]
  - IRRITABILITY [None]
  - LEUKOPENIA [None]
  - PARKINSONISM [None]
  - PERSECUTORY DELUSION [None]
  - REFUSAL OF TREATMENT BY PATIENT [None]
  - ROAD TRAFFIC ACCIDENT [None]
  - SKIN LACERATION [None]
  - SOCIAL AVOIDANT BEHAVIOUR [None]
  - SUICIDE ATTEMPT [None]
